FAERS Safety Report 8022748-2 (Version None)
Quarter: 2012Q1

REPORT INFORMATION
  Report Type: 
  Country: None (occurrence: None)
  Receive Date: 20120104
  Receipt Date: 20120102
  Transmission Date: 20120608
  Serious: Yes (Other)
  Sender: FDA-Public Use
  Company Number: DE-ROCHE-1026911

PATIENT
  Sex: Male
  Weight: 89.5 kg

DRUGS (2)
  1. MIRCERA [Suspect]
     Indication: NEPHROGENIC ANAEMIA
     Route: 042
     Dates: start: 20110713, end: 20111213
  2. MIRCERA [Suspect]
     Route: 042
     Dates: start: 20120101

REACTIONS (1)
  - HAEMOGLOBIN DECREASED [None]
